FAERS Safety Report 22316034 (Version 1)
Quarter: 2023Q2

REPORT INFORMATION
  Report Type: Spontaneous
  Country: US (occurrence: US)
  Receive Date: 20230512
  Receipt Date: 20230512
  Transmission Date: 20230721
  Serious: No
  Sender: FDA-Public Use
  Company Number: US-GALDERMA-US2023006546

PATIENT

DRUGS (6)
  1. PROACTIV MD ADAPALENE ACNE TREATMENT [Suspect]
     Active Substance: ADAPALENE
     Indication: Product used for unknown indication
     Dosage: 1 DOSAGE FORM, BID, 2 OR MORE TIMES A DAY, THE RIGHT AMOUNT
     Route: 061
     Dates: start: 2021, end: 2021
  2. Proactiv MD Ultra Gentle Cleanser [Concomitant]
     Indication: Product used for unknown indication
     Dosage: 1 DOSAGE FORM, BID, 2 OR MORE TIMES A DAY, THE RIGHT AMOUNT
     Route: 061
     Dates: start: 2021, end: 2021
  3. Proactiv MD Ultra Hydrating Moisturizer [Concomitant]
     Indication: Product used for unknown indication
     Dosage: 1 DOSAGE FORM, BID, 2 OR MORE TIMES A DAY, THE RIGHT AMOUNT
     Route: 061
     Dates: start: 2021, end: 2021
  4. COSMETICS [Concomitant]
     Active Substance: COSMETICS
     Indication: Product used for unknown indication
     Dosage: 1 DOSAGE FORM, BID, 2 OR MORE TIMES A DAY, THE RIGHT AMOUNT
     Route: 061
     Dates: start: 2021, end: 2021
  5. Proactiv Redness Relief Serum [Concomitant]
     Indication: Product used for unknown indication
     Dosage: 1 DOSAGE FORM, BID, 2 OR MORE TIMES A DAY, THE RIGHT AMOUNT
     Route: 061
     Dates: start: 2021, end: 2021
  6. VITAMINS [Concomitant]
     Active Substance: VITAMINS
     Indication: Product used for unknown indication
     Dosage: 1 UNK
     Route: 065

REACTIONS (4)
  - Dry skin [Recovered/Resolved]
  - Skin exfoliation [Recovered/Resolved]
  - Inappropriate schedule of product administration [Recovered/Resolved]
  - Overdose [Recovered/Resolved]

NARRATIVE: CASE EVENT DATE: 20210101
